FAERS Safety Report 19944144 (Version 2)
Quarter: 2021Q4

REPORT INFORMATION
  Report Type: Report from Study
  Country: US (occurrence: US)
  Receive Date: 20211012
  Receipt Date: 20211018
  Transmission Date: 20220303
  Serious: No
  Sender: FDA-Public Use
  Company Number: NVSC2021US119486

PATIENT
  Sex: Female

DRUGS (3)
  1. ENTRESTO [Suspect]
     Active Substance: SACUBITRIL\VALSARTAN
     Indication: Ejection fraction
     Dosage: 50 MG, BID (24/26 MG)
     Route: 048
     Dates: start: 20210401, end: 20210628
  2. ENTRESTO [Suspect]
     Active Substance: SACUBITRIL\VALSARTAN
     Dosage: 1 DF,BID(49/51MG, TWICE A DAY)
     Route: 048
     Dates: start: 20210628
  3. ENTRESTO [Suspect]
     Active Substance: SACUBITRIL\VALSARTAN
     Route: 048

REACTIONS (3)
  - Weight decreased [Unknown]
  - Ejection fraction decreased [Not Recovered/Not Resolved]
  - Product use in unapproved indication [Unknown]
